FAERS Safety Report 7630843-2 (Version None)
Quarter: 2011Q3

REPORT INFORMATION
  Report Type: 
  Country: None (occurrence: None)
  Receive Date: 20110723
  Receipt Date: 20110714
  Transmission Date: 20111222
  Serious: Yes (Hospitalization)
  Sender: FDA-Public Use
  Company Number: US-ABBOTT-11P-163-0839135-00

PATIENT
  Sex: Male
  Weight: 106.69 kg

DRUGS (5)
  1. UNKNOWN MEDICATION [Concomitant]
     Indication: HYPOTHYROIDISM
  2. PROMETRIUM [Concomitant]
     Indication: ADRENAL DISORDER
  3. METHADONE HCL [Concomitant]
     Indication: PAIN
  4. ANDROGEL [Suspect]
     Indication: BLOOD TESTOSTERONE DECREASED
     Dosage: THE PATIENT WAS TAKING THE MEDICATION INTERMITENTLY
     Dates: start: 20040101
  5. METHYLPREDNISOLONE [Concomitant]
     Indication: ADRENAL INSUFFICIENCY

REACTIONS (6)
  - BLOOD TESTOSTERONE ABNORMAL [None]
  - PULMONARY EMBOLISM [None]
  - BACK PAIN [None]
  - LOSS OF CONSCIOUSNESS [None]
  - WEIGHT INCREASED [None]
  - PULMONARY HAEMORRHAGE [None]
